APPROVED DRUG PRODUCT: LOZOL
Active Ingredient: INDAPAMIDE
Strength: 2.5MG **Federal Register determination that product was not discontinued or withdrawn for safety or effectiveness reasons**
Dosage Form/Route: TABLET;ORAL
Application: N018538 | Product #001
Applicant: SANOFI AVENTIS US LLC
Approved: Jul 6, 1983 | RLD: Yes | RS: No | Type: DISCN